FAERS Safety Report 11527687 (Version 1)
Quarter: 2015Q3

REPORT INFORMATION
  Report Type: Spontaneous
  Country: US (occurrence: US)
  Receive Date: 20150903
  Receipt Date: 20150903
  Transmission Date: 20151125
  Serious: No
  Sender: FDA-Public Use
  Company Number: US-ELI_LILLY_AND_COMPANY-US200905001505

PATIENT
  Sex: Female

DRUGS (6)
  1. LANTUS [Concomitant]
     Active Substance: INSULIN GLARGINE
     Indication: TYPE 2 DIABETES MELLITUS
     Dosage: 60 U, EACH EVENING
  2. GLUCOPHAGE [Concomitant]
     Active Substance: METFORMIN HYDROCHLORIDE
     Indication: TYPE 2 DIABETES MELLITUS
     Dosage: 1000 MG, UNK
  3. CORTICOSTEROIDS [Concomitant]
     Active Substance: CORTICOSTEROID NOS
  4. HUMALOG [Suspect]
     Active Substance: INSULIN LISPRO
     Dosage: UNK, AS NEEDED
  5. HUMALOG MIX75/25 [Suspect]
     Active Substance: INSULIN LISPRO
     Dosage: 8 U, UNK
     Dates: start: 2001
  6. ACTOS [Concomitant]
     Active Substance: PIOGLITAZONE HYDROCHLORIDE
     Indication: TYPE 2 DIABETES MELLITUS
     Dosage: 30 MG, UNK

REACTIONS (2)
  - Blood glucose increased [Unknown]
  - Drug dispensing error [Unknown]
